FAERS Safety Report 7012597-6 (Version None)
Quarter: 2010Q3

REPORT INFORMATION
  Report Type: 
  Country: None (occurrence: None)
  Receive Date: 20100924
  Receipt Date: 20100916
  Transmission Date: 20110219
  Serious: Yes (Hospitalization)
  Sender: FDA-Public Use
  Company Number: US-MPIJNJ-2010-03464

PATIENT
  Sex: Male
  Weight: 73.4 kg

DRUGS (19)
  1. VELCADE [Suspect]
     Indication: MULTIPLE MYELOMA
     Dosage: 1.0 MG/M2, UNK
     Route: 042
     Dates: start: 20100611, end: 20100621
  2. DOXIL [Suspect]
     Indication: MULTIPLE MYELOMA
     Dosage: 30 MG/M2, UNK
     Route: 042
     Dates: start: 20100614, end: 20100614
  3. DEXAMETHASONE [Suspect]
     Indication: MULTIPLE MYELOMA
     Dosage: 20 MG, UNK
     Route: 048
     Dates: start: 20100611, end: 20100622
  4. CYCLOPHOSPHAMIDE [Suspect]
     Indication: MULTIPLE MYELOMA
     Dosage: 750 MG/M2, UNK
     Route: 042
     Dates: start: 20100611, end: 20100611
  5. FRAGMIN [Concomitant]
     Dosage: UNK
     Dates: end: 20100307
  6. OXYCODONE [Concomitant]
     Indication: PAIN
     Dosage: UNK
  7. MIRALAX [Concomitant]
     Dosage: UNK
  8. ZANTAC                             /00550802/ [Concomitant]
     Dosage: 150 MG, BID
  9. BACLOFEN [Concomitant]
     Dosage: UNK
  10. CALCIUM CARBONATE [Concomitant]
     Dosage: UNK
  11. COMPAZINE [Concomitant]
     Indication: NAUSEA
     Dosage: UNK
  12. AMBIEN [Concomitant]
     Indication: SLEEP DISORDER
     Dosage: UNK
  13. ACYCLOVIR [Concomitant]
     Dosage: 400 MG, BID
  14. CIPRO [Concomitant]
     Dosage: 500 MG, BID
  15. FLUCONAZOLE [Concomitant]
     Dosage: 400 MG, QD
  16. DURAGESIC-100 [Concomitant]
     Dosage: 75 DF, UNK
     Route: 062
  17. FLEXERIL [Concomitant]
     Dosage: UNK
  18. SENOKOT [Concomitant]
     Dosage: UNK
  19. LIDODERM [Concomitant]
     Dosage: 5 %, BID
     Route: 061

REACTIONS (3)
  - DEEP VEIN THROMBOSIS [None]
  - HEADACHE [None]
  - LOCALISED INFECTION [None]
